FAERS Safety Report 5746241-2 (Version None)
Quarter: 2008Q2

REPORT INFORMATION
  Report Type: 
  Country: None (occurrence: None)
  Receive Date: 20080522
  Receipt Date: 20080519
  Transmission Date: 20081010
  Serious: Yes (Other)
  Sender: FDA-Public Use
  Company Number: PHBS2008BR02069

PATIENT
  Age: 67 Year
  Sex: Female
  Weight: 70 kg

DRUGS (5)
  1. TEGRETOL [Suspect]
     Indication: TRIGEMINAL NEURALGIA
     Dosage: 400 MG, TID
     Route: 048
     Dates: start: 19900101
  2. TEGRETOL [Suspect]
     Dosage: 200 MG, ONCE2SDO
     Route: 048
     Dates: start: 20080210
  3. SERTRALINE [Concomitant]
     Indication: DEPRESSION
     Dosage: 50 MG, QD
     Route: 048
     Dates: start: 20040101
  4. ALENDRONATE SODIUM [Concomitant]
     Indication: OSTEOPOROSIS
     Dosage: 70 MG, QW
     Route: 048
     Dates: start: 20030101
  5. CALCIUM [Concomitant]
     Indication: OSTEOPOROSIS
     Dosage: 500 MG, BID
     Route: 048
     Dates: start: 19980101

REACTIONS (4)
  - ANEURYSM [None]
  - ANEURYSMECTOMY [None]
  - DRUG EFFECT DECREASED [None]
  - TRIGEMINAL NEURALGIA [None]
